FAERS Safety Report 4872409-3 (Version None)
Quarter: 2006Q1

REPORT INFORMATION
  Report Type: 
  Country: None (occurrence: None)
  Receive Date: 20060104
  Receipt Date: 20051005
  Transmission Date: 20060701
  Serious: Yes (Hospitalization, Disabling)
  Sender: FDA-Public Use
  Company Number: US-MERCK-0510USA04132

PATIENT
  Age: 51 Year
  Sex: Female
  Weight: 107 kg

DRUGS (7)
  1. VIOXX [Suspect]
     Indication: PAIN
     Route: 048
     Dates: start: 20010420, end: 20010508
  2. CLARITIN-D [Concomitant]
     Route: 065
  3. CARDURA [Concomitant]
     Route: 065
  4. SYNTHROID [Concomitant]
     Route: 065
  5. FLOVENT [Concomitant]
     Route: 065
  6. ALLEGRA [Concomitant]
     Route: 065
  7. SINGULAIR [Concomitant]
     Route: 065

REACTIONS (7)
  - ANIMAL BITE [None]
  - ANIMAL SCRATCH [None]
  - CARDIOVASCULAR DISORDER [None]
  - CARTILAGE INJURY [None]
  - MYOCARDIAL INFARCTION [None]
  - PALPITATIONS [None]
  - RESUSCITATION [None]
